FAERS Safety Report 9165272 (Version 1)
Quarter: 2013Q1

REPORT INFORMATION
  Report Type: Spontaneous
  Country: US (occurrence: US)
  Receive Date: 20130315
  Receipt Date: 20130315
  Transmission Date: 20140127
  Serious: Yes (Hospitalization)
  Sender: FDA-Public Use
  Company Number: US-ELI_LILLY_AND_COMPANY-US201205002029

PATIENT
  Age: 72 Year
  Sex: Female

DRUGS (1)
  1. FORTEO [Suspect]
     Indication: OSTEOPOROSIS
     Dosage: UNK UNK, QD
     Dates: end: 2011

REACTIONS (8)
  - Diverticulitis [Unknown]
  - Upper limb fracture [Unknown]
  - Fall [Recovered/Resolved]
  - Nausea [Unknown]
  - Dizziness [Unknown]
  - Heart rate increased [Unknown]
  - Blood pressure increased [Unknown]
  - Drug hypersensitivity [Unknown]
